FAERS Safety Report 11224053 (Version 1)
Quarter: 2015Q2

REPORT INFORMATION
  Report Type: Spontaneous
  Country: FR (occurrence: FR)
  Receive Date: 20150629
  Receipt Date: 20150629
  Transmission Date: 20150821
  Serious: Yes (Other)
  Sender: FDA-Public Use
  Company Number: FR-ROCHE-1479215

PATIENT
  Age: 51 Year
  Sex: Male

DRUGS (9)
  1. COMBIVIR [Suspect]
     Active Substance: LAMIVUDINE\ZIDOVUDINE
     Indication: HIV INFECTION
     Dosage: 150MG/300MG
     Route: 048
     Dates: start: 20040124, end: 20140314
  2. NORVIR [Suspect]
     Active Substance: RITONAVIR
     Route: 048
     Dates: start: 20140408, end: 20150204
  3. COMBIVIR [Suspect]
     Active Substance: LAMIVUDINE\ZIDOVUDINE
     Route: 048
     Dates: start: 20140408
  4. TRUVADA [Suspect]
     Active Substance: EMTRICITABINE\TENOFOVIR DISOPROXIL FUMARATE
     Indication: HIV INFECTION
     Route: 048
     Dates: start: 20140314, end: 20140402
  5. TRUVADA [Suspect]
     Active Substance: EMTRICITABINE\TENOFOVIR DISOPROXIL FUMARATE
     Route: 048
     Dates: start: 20141126
  6. INVIRASE [Suspect]
     Active Substance: SAQUINAVIR MESYLATE
     Indication: HIV INFECTION
     Dosage: 500 MG
     Route: 048
     Dates: start: 20041224, end: 20140314
  7. INVIRASE [Suspect]
     Active Substance: SAQUINAVIR MESYLATE
     Route: 048
     Dates: start: 20140408, end: 20150204
  8. NORVIR [Suspect]
     Active Substance: RITONAVIR
     Indication: HIV INFECTION
     Route: 048
     Dates: start: 20041224, end: 20140314
  9. VIRAMUNE [Concomitant]
     Active Substance: NEVIRAPINE
     Route: 065
     Dates: start: 20140314, end: 20140402

REACTIONS (3)
  - Lipodystrophy acquired [Unknown]
  - Lipodystrophy acquired [Unknown]
  - Condition aggravated [Unknown]

NARRATIVE: CASE EVENT DATE: 20140314
